FAERS Safety Report 23999623 (Version 1)
Quarter: 2024Q2

REPORT INFORMATION
  Report Type: Spontaneous
  Country: US (occurrence: None)
  Receive Date: 20240620
  Receipt Date: 20240620
  Transmission Date: 20240716
  Serious: Yes (Other)
  Sender: FDA-Public Use
  Company Number: None

PATIENT
  Age: 46 Year
  Sex: Female
  Weight: 81 kg

DRUGS (2)
  1. NURTEC ODT [Suspect]
     Active Substance: RIMEGEPANT SULFATE
     Indication: Migraine
     Dosage: OTHER QUANTITY : 1 TABLET(S);?OTHER FREQUENCY : EVERY OTHER DAY;?
     Route: 048
     Dates: start: 20240416
  2. ZOLOFT INHALER [Concomitant]

REACTIONS (6)
  - Wrong technique in product usage process [None]
  - Food interaction [None]
  - Nonspecific reaction [None]
  - Paraesthesia oral [None]
  - Anaphylactic reaction [None]
  - Feeling abnormal [None]

NARRATIVE: CASE EVENT DATE: 20240612
